FAERS Safety Report 4363247-9 (Version None)
Quarter: 2004Q2

REPORT INFORMATION
  Report Type: 
  Country: None (occurrence: None)
  Receive Date: 20040519
  Receipt Date: 20040507
  Transmission Date: 20050107
  Serious: Yes (Death, Hospitalization)
  Sender: FDA-Public Use
  Company Number: 04P-259-0260108-00

PATIENT
  Age: 53 Year
  Sex: Female

DRUGS (5)
  1. VALPROATE SODIUM [Suspect]
     Indication: EPILEPSY
     Dosage: 1500 MG, 1 IN 1 D, PER ORAL
     Route: 048
     Dates: start: 20031204, end: 20031221
  2. DEXAMETHASONE [Concomitant]
  3. FUROSEMIDE [Concomitant]
  4. HYDERGINE [Concomitant]
  5. PIRACETAM [Concomitant]

REACTIONS (5)
  - JAUNDICE [None]
  - LIVER FUNCTION TEST ABNORMAL [None]
  - SOMNOLENCE [None]
  - UNEVALUABLE EVENT [None]
  - VOMITING [None]
